FAERS Safety Report 4628320-6 (Version None)
Quarter: 2005Q2

REPORT INFORMATION
  Report Type: 
  Country: None (occurrence: None)
  Receive Date: 20050401
  Receipt Date: 20050325
  Transmission Date: 20051028
  Serious: Yes (Hospitalization)
  Sender: FDA-Public Use
  Company Number: APP200500171

PATIENT
  Age: 51 Year
  Sex: Male
  Weight: 102.0593 kg

DRUGS (6)
  1. FLUOROURACIL INJ [Suspect]
     Indication: RECTAL CANCER
     Dosage: UNK, INTRAVENOUS
     Route: 042
     Dates: start: 20020201, end: 20020325
  2. PLAVIX [Concomitant]
  3. HEPARIN [Concomitant]
  4. PROTONIX [Concomitant]
  5. HALDOL [Concomitant]
  6. ATIVAN [Concomitant]

REACTIONS (6)
  - ANGIOGRAM ABNORMAL [None]
  - CARDIAC ARREST [None]
  - CHEST PAIN [None]
  - HAEMOPTYSIS [None]
  - URINE OUTPUT DECREASED [None]
  - VENTRICULAR FIBRILLATION [None]
